FAERS Safety Report 5296500-5 (Version None)
Quarter: 2007Q2

REPORT INFORMATION
  Report Type: 
  Country: None (occurrence: None)
  Receive Date: 20070413
  Receipt Date: 20070403
  Transmission Date: 20071010
  Serious: Yes (Other)
  Sender: FDA-Public Use
  Company Number: AU-PFIZER INC-2006046813

PATIENT
  Sex: Female
  Weight: 57.4 kg

DRUGS (6)
  1. ZAVEDOS POWDER, STERILE [Suspect]
     Indication: ACUTE MYELOID LEUKAEMIA
     Route: 042
     Dates: start: 20060302, end: 20060304
  2. CYTARABINE [Suspect]
     Indication: ACUTE MYELOID LEUKAEMIA
     Route: 042
     Dates: start: 20060302, end: 20060309
  3. ETOPOSIDE [Suspect]
     Indication: ACUTE MYELOID LEUKAEMIA
     Route: 042
  4. AMPHOTERICIN B [Concomitant]
     Route: 042
     Dates: start: 20060319, end: 20060331
  5. MEROPENEM [Concomitant]
     Route: 042
     Dates: start: 20060305, end: 20060329
  6. TEICOPLANIN [Concomitant]
     Route: 042
     Dates: start: 20060320, end: 20060327

REACTIONS (1)
  - VENOOCCLUSIVE DISEASE [None]
